FAERS Safety Report 13160458 (Version 2)
Quarter: 2017Q4

REPORT INFORMATION
  Report Type: Spontaneous
  Country: US (occurrence: US)
  Receive Date: 20170128
  Receipt Date: 20171102
  Transmission Date: 20180320
  Serious: No
  Sender: FDA-Public Use
  Company Number: US-TEVA-731164ACC

PATIENT
  Age: 60 Year
  Sex: Female

DRUGS (24)
  1. PRILOSEC [Concomitant]
     Active Substance: OMEPRAZOLE MAGNESIUM
  2. LANTUS [Concomitant]
     Active Substance: INSULIN GLARGINE
  3. CALCIUM [Concomitant]
     Active Substance: CALCIUM
  4. TELMISARTAN. [Concomitant]
     Active Substance: TELMISARTAN
  5. TEMAZEPAM. [Concomitant]
     Active Substance: TEMAZEPAM
  6. RANITIDINE. [Concomitant]
     Active Substance: RANITIDINE
  7. MECLIZINE [Concomitant]
     Active Substance: MECLIZINE HYDROCHLORIDE
  8. SENNA-LAX [Concomitant]
     Active Substance: SENNOSIDES
  9. COPAXONE [Suspect]
     Active Substance: GLATIRAMER ACETATE
     Indication: MULTIPLE SCLEROSIS
     Dosage: 20 MILLIGRAM DAILY;
     Route: 058
     Dates: start: 20090317
  10. COPAXONE [Suspect]
     Active Substance: GLATIRAMER ACETATE
     Dosage: 20 MILLIGRAM DAILY; PREFILLED SYRIN
     Route: 058
     Dates: start: 20150901
  11. PROTONIX [Concomitant]
     Active Substance: PANTOPRAZOLE SODIUM
  12. ACYCLOVIR. [Concomitant]
     Active Substance: ACYCLOVIR
  13. SLEEP AID [Concomitant]
     Active Substance: DIPHENHYDRAMINE HYDROCHLORIDE\DOXYLAMINE SUCCINATE
  14. BACLOFEN. [Concomitant]
     Active Substance: BACLOFEN
  15. DOCULASE [Concomitant]
  16. NOVOLOG [Concomitant]
     Active Substance: INSULIN ASPART
  17. DIAZEPAM. [Concomitant]
     Active Substance: DIAZEPAM
  18. ATORVASTATIN [Concomitant]
     Active Substance: ATORVASTATIN
  19. DICYCLOMINE [Concomitant]
     Active Substance: DICYCLOMINE HYDROCHLORIDE
  20. CORTEF [Concomitant]
     Active Substance: HYDROCORTISONE
  21. ALENDRONATE [Concomitant]
     Active Substance: ALENDRONATE SODIUM
  22. FLUDROCORT [Concomitant]
  23. MELOXICAM. [Concomitant]
     Active Substance: MELOXICAM
  24. CYCLOBENZAPRINE. [Concomitant]
     Active Substance: CYCLOBENZAPRINE

REACTIONS (5)
  - Musculoskeletal discomfort [Not Recovered/Not Resolved]
  - Insomnia [Not Recovered/Not Resolved]
  - Vision blurred [Not Recovered/Not Resolved]
  - Fatigue [Not Recovered/Not Resolved]
  - Myalgia [Unknown]

NARRATIVE: CASE EVENT DATE: 201612
